FAERS Safety Report 12673622 (Version 1)
Quarter: 2016Q3

REPORT INFORMATION
  Report Type: Spontaneous
  Country: US (occurrence: US)
  Receive Date: 20160822
  Receipt Date: 20160822
  Transmission Date: 20161109
  Serious: No
  Sender: FDA-Public Use
  Company Number: US-PFIZER INC-2016392621

PATIENT
  Age: 34 Year

DRUGS (4)
  1. AMOXICILLIN. [Suspect]
     Active Substance: AMOXICILLIN
     Dosage: UNK
  2. SEPTRA [Suspect]
     Active Substance: SULFAMETHOXAZOLE\TRIMETHOPRIM
     Dosage: UNK
  3. SEPTA [Suspect]
     Active Substance: CEPHRADINE
     Dosage: UNK
  4. CEFOTAN [Suspect]
     Active Substance: CEFOTETAN DISODIUM
     Dosage: UNK

REACTIONS (1)
  - Drug hypersensitivity [Unknown]
